FAERS Safety Report 10982707 (Version 1)
Quarter: 2015Q1

REPORT INFORMATION
  Report Type: Spontaneous
  Country: US (occurrence: None)
  Receive Date: 20150302
  Receipt Date: 20150302
  Transmission Date: 20150721
  Serious: Yes (Other)
  Sender: FDA-Public Use
  Company Number: M2014-011A

PATIENT
  Age: 14 Year
  Sex: Female

DRUGS (5)
  1. ANIMAL ALLERGENS, AP DOG HAIR AND DANDER CANIS SPP [Suspect]
     Active Substance: CANIS LUPUS FAMILIARIS DANDER\CANIS LUPUS FAMILIARIS HAIR
     Indication: IMMUNE SYSTEM DISORDER
     Dosage: 0.40CC/INJECTION
     Dates: start: 20140820
  2. ANIMAL ALLERGENS, AP DOG HAIR AND DANDER CANIS SPP [Suspect]
     Active Substance: CANIS LUPUS FAMILIARIS DANDER\CANIS LUPUS FAMILIARIS HAIR
     Indication: IMMUNE SYSTEM DISORDER
     Dosage: 0.40CC/INJECTION
     Dates: start: 20140820
  3. SYNTHROID [Concomitant]
     Active Substance: LEVOTHYROXINE SODIUM
  4. ANIMAL ALLERGENS, AP DOG HAIR AND DANDER CANIS SPP [Suspect]
     Active Substance: CANIS LUPUS FAMILIARIS DANDER\CANIS LUPUS FAMILIARIS HAIR
     Indication: HYPERSENSITIVITY
     Dosage: 0.40CC/INJECTION
     Dates: start: 20140820
  5. ANIMAL ALLERGENS, AP DOG HAIR AND DANDER CANIS SPP [Suspect]
     Active Substance: CANIS LUPUS FAMILIARIS DANDER\CANIS LUPUS FAMILIARIS HAIR
     Indication: HYPERSENSITIVITY
     Dosage: 0.40CC/INJECTION
     Dates: start: 20140820

REACTIONS (6)
  - Injection site urticaria [None]
  - Eye swelling [None]
  - Throat irritation [None]
  - Flushing [None]
  - Chest discomfort [None]
  - Urticaria [None]

NARRATIVE: CASE EVENT DATE: 20140820
